FAERS Safety Report 14251367 (Version 2)
Quarter: 2017Q4

REPORT INFORMATION
  Report Type: Spontaneous
  Country: AU (occurrence: AU)
  Receive Date: 20171205
  Receipt Date: 20171212
  Transmission Date: 20180321
  Serious: Yes (Other)
  Sender: FDA-Public Use
  Company Number: AU-GE HEALTHCARE LIFE SCIENCES-2017CSU003971

PATIENT

DRUGS (1)
  1. OMNIPAQUE [Suspect]
     Active Substance: IOHEXOL
     Indication: CHEST PAIN
     Dosage: 96 ML, SINGLE
     Route: 042
     Dates: start: 20171011, end: 20171011

REACTIONS (2)
  - Respiratory distress [Recovered/Resolved with Sequelae]
  - Throat tightness [Recovered/Resolved with Sequelae]

NARRATIVE: CASE EVENT DATE: 20171011
